FAERS Safety Report 18295298 (Version 1)
Quarter: 2020Q3

REPORT INFORMATION
  Report Type: Spontaneous
  Country: US (occurrence: US)
  Receive Date: 20200922
  Receipt Date: 20200922
  Transmission Date: 20201103
  Serious: Yes (Hospitalization)
  Sender: FDA-Public Use
  Company Number: None

PATIENT
  Age: 56 Year
  Sex: Male

DRUGS (16)
  1. TEMOZOLOMIDE. [Suspect]
     Active Substance: TEMOZOLOMIDE
     Indication: BRAIN NEOPLASM MALIGNANT
     Dosage: ?          OTHER FREQUENCY:D FOR 5D Q28D CYCL;?
     Route: 048
     Dates: start: 20200608
  2. HYDROCO [Concomitant]
  3. PANTOPRAZOLE [Concomitant]
     Active Substance: PANTOPRAZOLE
  4. FLUOXETINE [Concomitant]
     Active Substance: FLUOXETINE HYDROCHLORIDE
  5. METHADONE [Concomitant]
     Active Substance: METHADONE HYDROCHLORIDE
  6. POLYETH [Concomitant]
  7. DEXAMETHASON [Concomitant]
     Active Substance: DEXAMETHASONE
  8. HYDROMORPHON [Concomitant]
     Active Substance: HYDROMORPHONE
  9. LEVETIRACETA [Concomitant]
     Active Substance: LEVETIRACETAM
  10. ONDANSETRON [Concomitant]
     Active Substance: ONDANSETRON
  11. CARVEDILOL. [Concomitant]
     Active Substance: CARVEDILOL
  12. LORAZEPAM. [Concomitant]
     Active Substance: LORAZEPAM
  13. OMEPRAZOLE. [Concomitant]
     Active Substance: OMEPRAZOLE
  14. ENALAPRIL [Concomitant]
     Active Substance: ENALAPRIL
  15. TAMSULOSIN [Concomitant]
     Active Substance: TAMSULOSIN
  16. TRAZODONE [Concomitant]
     Active Substance: TRAZODONE HYDROCHLORIDE

REACTIONS (2)
  - Pancreatitis acute [None]
  - Haemorrhage [None]
